FAERS Safety Report 4816080-5 (Version None)
Quarter: 2005Q4

REPORT INFORMATION
  Report Type: 
  Country: None (occurrence: None)
  Receive Date: 20051026
  Receipt Date: 20051013
  Transmission Date: 20060501
  Serious: Yes (Hospitalization)
  Sender: FDA-Public Use
  Company Number: 1824

PATIENT
  Sex: Female

DRUGS (3)
  1. AMNESTEEM [Suspect]
     Dosage: PO
     Route: 048
     Dates: start: 20040825
  2. CLARAVIS [Suspect]
     Dosage: PO
     Route: 048
     Dates: start: 20050222
  3. SOTRET [Suspect]

REACTIONS (5)
  - DEPRESSION [None]
  - ERYTHEMA INFECTIOSUM [None]
  - MULTIPLE DRUG OVERDOSE [None]
  - SPINAL FRACTURE [None]
  - SPORTS INJURY [None]
